FAERS Safety Report 7558398-1 (Version None)
Quarter: 2011Q2

REPORT INFORMATION
  Report Type: 
  Country: None (occurrence: None)
  Receive Date: 20110620
  Receipt Date: 20110607
  Transmission Date: 20111010
  Serious: Yes (Other)
  Sender: FDA-Public Use
  Company Number: PHHY2011US50799

PATIENT
  Age: 54 Year
  Sex: Male

DRUGS (4)
  1. CORTICOSTEROID NOS [Concomitant]
  2. BIOTIN [Concomitant]
  3. ANTIHISTAMINES [Concomitant]
  4. CYCLOSPORINE [Suspect]
     Indication: DERMATITIS ATOPIC
     Dosage: 2.2 MG/KG, UNK

REACTIONS (3)
  - GASTROOESOPHAGEAL REFLUX DISEASE [None]
  - HYPERTENSION [None]
  - UPPER RESPIRATORY TRACT INFECTION [None]
